FAERS Safety Report 7581375-1 (Version None)
Quarter: 2011Q2

REPORT INFORMATION
  Report Type: 
  Country: None (occurrence: None)
  Receive Date: 20110629
  Receipt Date: 20110622
  Transmission Date: 20111010
  Serious: Yes (Other)
  Sender: FDA-Public Use
  Company Number: GB-PFIZER INC-2011139407

PATIENT
  Age: 35 Year
  Sex: Female

DRUGS (23)
  1. OMEPRAZOLE [Concomitant]
     Dosage: 20 MG, UNK
     Dates: start: 20101212
  2. CHLORHEXIDINE [Concomitant]
     Dosage: 10 ML, UNK
     Dates: start: 20101212
  3. DIPROBASE, UNSPECIFIED [Concomitant]
     Dosage: UNK
     Route: 061
     Dates: start: 20101227, end: 20101231
  4. CYTARABINE [Suspect]
     Indication: ACUTE MYELOID LEUKAEMIA
     Dosage: UNK
     Dates: start: 20101212, end: 20101221
  5. DAUNORUBICIN HCL [Suspect]
     Indication: ACUTE MYELOID LEUKAEMIA
     Dosage: UNK
     Dates: start: 20101212, end: 20101221
  6. ITRACONAZOLE [Concomitant]
     Dosage: 200 MG, UNK
     Dates: start: 20101212
  7. SANDOCAL [Concomitant]
     Dosage: 1 DF, UNK
     Dates: start: 20101227, end: 20101227
  8. GEMTUZUMAB OZOGAMICIN [Suspect]
     Indication: ACUTE MYELOID LEUKAEMIA
     Dosage: 6 MG, UNK
     Dates: start: 20101212, end: 20101221
  9. CYTARABINE [Suspect]
     Indication: MYELODYSPLASTIC SYNDROME
  10. ETOPOSIDE [Suspect]
     Indication: MYELODYSPLASTIC SYNDROME
  11. METRONIDAZOLE [Concomitant]
     Dosage: 500 MG, UNK
     Dates: start: 20101222
  12. VANCOMYCIN [Concomitant]
     Dosage: 1 G, UNK
     Dates: start: 20101227
  13. ACYCLOVIR [Concomitant]
     Dosage: 200 MG, UNK
     Dates: start: 20101212
  14. NORETHISTERONE [Concomitant]
     Dosage: 15 MG, UNK
     Dates: start: 20101212
  15. GEMTUZUMAB OZOGAMICIN [Suspect]
     Indication: MYELODYSPLASTIC SYNDROME
  16. ETOPOSIDE [Suspect]
     Indication: ACUTE MYELOID LEUKAEMIA
     Dosage: UNK
     Dates: start: 20101212, end: 20101221
  17. TAROCYN [Concomitant]
     Dosage: 4.5 G, UNK
     Dates: start: 20101220, end: 20101229
  18. DIFFLAM [Concomitant]
     Dosage: 10 ML, UNK
     Dates: start: 20101212
  19. TRANEXAMIC ACID [Concomitant]
     Dosage: 1 G, UNK
  20. MEROPENEM [Concomitant]
     Dosage: 1 G, UNK
     Dates: start: 20101229
  21. CEFTAZIDIME [Concomitant]
     Dosage: 2 G, UNK
     Dates: start: 20101229
  22. SANDO K [Concomitant]
     Dosage: 2 DF, UNK
     Dates: start: 20101229, end: 20110103
  23. DAUNORUBICIN HCL [Suspect]
     Indication: MYELODYSPLASTIC SYNDROME

REACTIONS (1)
  - BLOOD ALBUMIN DECREASED [None]
